FAERS Safety Report 11176892 (Version 1)
Quarter: 2015Q2

REPORT INFORMATION
  Report Type: Spontaneous
  Country: US (occurrence: None)
  Receive Date: 20150515
  Receipt Date: 20150515
  Transmission Date: 20150821
  Serious: Yes (Hospitalization, Other)
  Sender: FDA-Public Use
  Company Number: 2015004184

PATIENT
  Age: 45 Year
  Sex: Female
  Weight: 1110 kg

DRUGS (2)
  1. CIMZIA [Suspect]
     Active Substance: CERTOLIZUMAB PEGOL
     Indication: ANKYLOSING SPONDYLITIS
     Route: 058
     Dates: start: 201407, end: 2014
  2. LISINOPRIL. [Concomitant]
     Active Substance: LISINOPRIL

REACTIONS (6)
  - Postoperative wound infection [None]
  - Abdominal pain [None]
  - Injection site pain [None]
  - Incorrect dose administered [None]
  - Intervertebral disc protrusion [None]
  - Back pain [None]

NARRATIVE: CASE EVENT DATE: 201409
